FAERS Safety Report 9708738 (Version 1)
Quarter: 2013Q4

REPORT INFORMATION
  Report Type: Spontaneous
  Country: US (occurrence: US)
  Receive Date: 20131125
  Receipt Date: 20131125
  Transmission Date: 20140711
  Serious: Yes (Hospitalization)
  Sender: FDA-Public Use
  Company Number: US-GLAXOSMITHKLINE-A1051123A

PATIENT
  Age: 46 Year
  Sex: Female

DRUGS (10)
  1. ADVAIR [Suspect]
     Indication: CHRONIC OBSTRUCTIVE PULMONARY DISEASE
     Dosage: 1PUFF TWICE PER DAY
     Route: 055
     Dates: start: 201307
  2. ALBUTEROL [Concomitant]
  3. SINGULAIR [Concomitant]
  4. BLOOD THINNER [Concomitant]
  5. DILAUDID [Concomitant]
  6. XANAX [Concomitant]
  7. ANTI-NAUSEA DRUGS [Concomitant]
  8. VENTOLIN [Concomitant]
  9. PRO-AIR [Concomitant]
  10. UNKNOWN [Concomitant]

REACTIONS (5)
  - Respiratory arrest [Recovering/Resolving]
  - Circulatory collapse [Recovering/Resolving]
  - Ligament sprain [Recovering/Resolving]
  - Abasia [Recovering/Resolving]
  - Joint injury [Recovering/Resolving]
